FAERS Safety Report 7023876-0 (Version None)
Quarter: 2010Q3

REPORT INFORMATION
  Report Type: 
  Country: None (occurrence: None)
  Receive Date: 20100916
  Receipt Date: 20100610
  Transmission Date: 20110219
  Serious: Yes (Hospitalization)
  Sender: FDA-Public Use
  Company Number: DKLU1062897

PATIENT
  Age: 11 Month
  Sex: Male

DRUGS (4)
  1. SABRIL [Suspect]
     Indication: INFANTILE SPASMS
     Dosage: 250 MG MILLIGRAM(S), 2 IN 1 D, ORAL
     Route: 048
     Dates: start: 20100416, end: 20100101
  2. KEPPRA [Concomitant]
  3. CLONAZEPAM [Concomitant]
  4. TOPAMAX [Concomitant]

REACTIONS (1)
  - VOMITING [None]
